FAERS Safety Report 5767103-0 (Version None)
Quarter: 2008Q2

REPORT INFORMATION
  Report Type: 
  Country: None (occurrence: None)
  Receive Date: 20080612
  Receipt Date: 20080604
  Transmission Date: 20081010
  Serious: Yes (Other)
  Sender: FDA-Public Use
  Company Number: BR-JNJFOC-20080601248

PATIENT
  Sex: Female
  Weight: 10 kg

DRUGS (1)
  1. ULTRACET [Suspect]
     Indication: DRUG EXPOSURE VIA BREAST MILK
     Dosage: 37.5 / 325 MG
     Route: 065

REACTIONS (2)
  - DRUG EXPOSURE VIA BREAST MILK [None]
  - HYPERSENSITIVITY [None]
